FAERS Safety Report 5130791-6 (Version None)
Quarter: 2006Q4

REPORT INFORMATION
  Report Type: 
  Country: None (occurrence: None)
  Receive Date: 20061019
  Receipt Date: 20060918
  Transmission Date: 20070319
  Serious: Yes (Disabling)
  Sender: FDA-Public Use
  Company Number: US-BRISTOL-MYERS SQUIBB COMPANY-13512785

PATIENT
  Age: 86 Year
  Sex: Female

DRUGS (3)
  1. KENALOG-40 [Suspect]
     Indication: MACULAR DEGENERATION
     Dosage: LOT NUMBER COULD ALSO BE 6C13553, EXPIRATION FEB-2008.
     Route: 031
     Dates: start: 20060911, end: 20060911
  2. MYDRIACYL [Concomitant]
  3. NEO-SYNEPHRINE [Concomitant]

REACTIONS (1)
  - ENDOPHTHALMITIS [None]
